FAERS Safety Report 4287275-7 (Version None)
Quarter: 2004Q1

REPORT INFORMATION
  Report Type: 
  Country: None (occurrence: None)
  Receive Date: 20040126
  Receipt Date: 20030909
  Transmission Date: 20041129
  Serious: No
  Sender: FDA-Public Use
  Company Number: USA030740984

PATIENT
  Age: 60 Year
  Sex: Female
  Weight: 48 kg

DRUGS (10)
  1. FORTEO [Suspect]
     Indication: OSTEOPOROSIS
     Dosage: 20 UG/DAY
     Dates: start: 20030707
  2. MINIPRESS [Concomitant]
  3. ALLEGRA [Concomitant]
  4. BUMEX [Concomitant]
  5. MICRO-K (POTASSIUM CHLORIDE) [Concomitant]
  6. FAMOTIDINE [Concomitant]
  7. OXYGEN [Concomitant]
  8. CALCIUM [Concomitant]
  9. FOSAMAX [Concomitant]
  10. MIACALCIN (CSLCITONIN, SALMON) [Concomitant]

REACTIONS (6)
  - ASTHENIA [None]
  - DIZZINESS [None]
  - INJECTION SITE HAEMORRHAGE [None]
  - MUSCLE CRAMP [None]
  - MUSCULAR WEAKNESS [None]
  - PAIN IN EXTREMITY [None]
